FAERS Safety Report 6760844-8 (Version None)
Quarter: 2010Q2

REPORT INFORMATION
  Report Type: 
  Country: None (occurrence: None)
  Receive Date: 20100608
  Receipt Date: 20100525
  Transmission Date: 20101027
  Serious: Yes (Other)
  Sender: FDA-Public Use
  Company Number: PHFR2010GB00802

PATIENT

DRUGS (2)
  1. VALSARTAN [Suspect]
  2. BENDROFLUAZIDE [Concomitant]

REACTIONS (2)
  - HYPERTENSION [None]
  - RENAL FAILURE CHRONIC [None]
